FAERS Safety Report 14182710 (Version 2)
Quarter: 2017Q4

REPORT INFORMATION
  Report Type: Spontaneous
  Country: US (occurrence: US)
  Receive Date: 20171113
  Receipt Date: 20171124
  Transmission Date: 20180321
  Serious: Yes (Other)
  Sender: FDA-Public Use
  Company Number: US-AMGEN-USASP2017168433

PATIENT
  Age: 71 Year
  Sex: Female
  Weight: 57.6 kg

DRUGS (12)
  1. CYMBALTA [Concomitant]
     Active Substance: DULOXETINE HYDROCHLORIDE
     Dosage: 60 MG, BID
  2. PANTOPRAZOLE [Concomitant]
     Active Substance: PANTOPRAZOLE
     Dosage: UNK UNK, BID
  3. OXYCONTIN [Concomitant]
     Active Substance: OXYCODONE HYDROCHLORIDE
     Dosage: 20 MG, BID
  4. PLAQUENIL [Concomitant]
     Active Substance: HYDROXYCHLOROQUINE SULFATE
     Indication: RHEUMATOID ARTHRITIS
     Dosage: 200 MG, BID
  5. GABAPENTIN. [Concomitant]
     Active Substance: GABAPENTIN
     Dosage: 300 MG, (2 TABLETS) QID
  6. TYLENOL [Concomitant]
     Active Substance: ACETAMINOPHEN
     Indication: RHEUMATOID ARTHRITIS
     Dosage: UNK UNK, BID
  7. CALCIUM [Concomitant]
     Active Substance: CALCIUM
  8. PROLIA [Suspect]
     Active Substance: DENOSUMAB
     Indication: OSTEOPENIA
     Dosage: UNK
     Route: 065
     Dates: start: 20170320
  9. PREDNISONE. [Concomitant]
     Active Substance: PREDNISONE
     Indication: INTERSTITIAL LUNG DISEASE
     Dosage: 5 MG, QD
  10. OXYCODONE [Concomitant]
     Active Substance: OXYCODONE
     Dosage: 7.5 MG, (2 TABLETS) QD
  11. VITAMIN D [Concomitant]
     Active Substance: CHOLECALCIFEROL
  12. PENICILLIN VK [Concomitant]
     Active Substance: PENICILLIN V POTASSIUM
     Dosage: 500 MG, QD

REACTIONS (16)
  - Malaise [Unknown]
  - Colitis [Not Recovered/Not Resolved]
  - Arthralgia [Recovered/Resolved]
  - Lung operation [Unknown]
  - Weight fluctuation [Recovering/Resolving]
  - Tooth abscess [Not Recovered/Not Resolved]
  - Dry mouth [Unknown]
  - Body height decreased [Unknown]
  - Spinal fracture [Unknown]
  - Eye inflammation [Unknown]
  - Dental restoration failure [Unknown]
  - Dental caries [Unknown]
  - Off label use [Unknown]
  - Tooth fracture [Unknown]
  - Ear infection [Unknown]
  - Corneal infection [Unknown]

NARRATIVE: CASE EVENT DATE: 2017
